FAERS Safety Report 19377077 (Version 1)
Quarter: 2021Q2

REPORT INFORMATION
  Report Type: Spontaneous
  Country: US (occurrence: US)
  Receive Date: 20210604
  Receipt Date: 20210604
  Transmission Date: 20210717
  Serious: Yes (Hospitalization)
  Sender: FDA-Public Use
  Company Number: US-MYLANLABS-2021M1032581

PATIENT
  Age: 36 Year
  Sex: Male

DRUGS (6)
  1. TIZANIDINE. [Suspect]
     Active Substance: TIZANIDINE
     Indication: PRODUCT USED FOR UNKNOWN INDICATION
     Dosage: 4 MILLIGRAM, Q6H AS NEEDED.
     Route: 048
  2. LEVOTHYROXINE. [Concomitant]
     Active Substance: LEVOTHYROXINE
     Indication: PRODUCT USED FOR UNKNOWN INDICATION
     Dosage: UNK
     Route: 065
  3. CETIRIZINE [Concomitant]
     Active Substance: CETIRIZINE HYDROCHLORIDE
     Indication: PRODUCT USED FOR UNKNOWN INDICATION
     Dosage: UNK
     Route: 065
  4. TIZANIDINE. [Suspect]
     Active Substance: TIZANIDINE
     Dosage: 80 MILLIGRAM APPROXIMATELY 20 H BEFORE PRESENTATION TO THE HOSPITAL
     Route: 048
  5. ATORVASTATIN [Concomitant]
     Active Substance: ATORVASTATIN
     Indication: PRODUCT USED FOR UNKNOWN INDICATION
     Dosage: UNK
     Route: 065
  6. LISINOPRIL. [Concomitant]
     Active Substance: LISINOPRIL
     Indication: PRODUCT USED FOR UNKNOWN INDICATION
     Dosage: UNK
     Route: 065

REACTIONS (12)
  - Depressed level of consciousness [Recovering/Resolving]
  - Hypomagnesaemia [Recovered/Resolved]
  - Acute kidney injury [Recovered/Resolved]
  - Electrocardiogram QT prolonged [Recovered/Resolved]
  - Asthenia [Recovering/Resolving]
  - Intentional overdose [Recovering/Resolving]
  - Hyporeflexia [Recovering/Resolving]
  - Hypokalaemia [Recovered/Resolved]
  - Potassium wasting nephropathy [Recovered/Resolved]
  - Muscle strength abnormal [Recovering/Resolving]
  - Vomiting [Recovering/Resolving]
  - Electrocardiogram U-wave abnormality [Recovered/Resolved]
